FAERS Safety Report 5126997-2 (Version None)
Quarter: 2006Q4

REPORT INFORMATION
  Report Type: 
  Country: None (occurrence: None)
  Receive Date: 20061013
  Receipt Date: 20061011
  Transmission Date: 20070319
  Serious: Yes (Other)
  Sender: FDA-Public Use
  Company Number: US-GLAXOSMITHKLINE-A0623246A

PATIENT
  Age: 16 Year
  Sex: Female

DRUGS (2)
  1. LAMICTAL [Suspect]
     Indication: EPILEPSY
     Dosage: 125MG TWICE PER DAY
     Route: 048
     Dates: start: 20040701
  2. KEPPRA [Concomitant]

REACTIONS (3)
  - CONVULSION [None]
  - GRAND MAL CONVULSION [None]
  - NASOPHARYNGITIS [None]
